FAERS Safety Report 13622401 (Version 1)
Quarter: 2017Q2

REPORT INFORMATION
  Report Type: Spontaneous
  Country: US (occurrence: US)
  Receive Date: 20170607
  Receipt Date: 20170607
  Transmission Date: 20170830
  Serious: No
  Sender: FDA-Public Use
  Company Number: US-ROCHE-1848886

PATIENT
  Age: 60 Year
  Sex: Female
  Weight: 95.34 kg

DRUGS (2)
  1. TEGRETOL [Concomitant]
     Active Substance: CARBAMAZEPINE
     Indication: EPILEPSY
     Dosage: TEGRATOL XR 400MG BID, TEGRATOL XR 200MG BID, 1987
     Route: 065
     Dates: start: 1987
  2. KLONOPIN [Suspect]
     Active Substance: CLONAZEPAM
     Indication: SEIZURE
     Dosage: TAKE IT THREE TIMES DAILY  FOR TWENTY YEARS.
     Route: 048

REACTIONS (1)
  - Back pain [Recovered/Resolved]

NARRATIVE: CASE EVENT DATE: 20161031
